FAERS Safety Report 8103805-9 (Version None)
Quarter: 2011Q4

REPORT INFORMATION
  Report Type: 
  Country: None (occurrence: None)
  Receive Date: 20111222
  Receipt Date: 20111121
  Transmission Date: 20120403
  Serious: Yes (Death, Hospitalization)
  Sender: FDA-Public Use
  Company Number: UTC-012585

PATIENT
  Age: 90 Year
  Sex: Male
  Weight: 89.1 kg

DRUGS (2)
  1. LETAIRIS (AMBRISENTAN) (5 MILLIGRAM) [Concomitant]
  2. TYVASO [Suspect]
     Indication: PULMONARY ARTERIAL HYPERTENSION
     Dosage: 216 MCG  (54 MCG, 4 IN 1 D), INHALATION
     Route: 055
     Dates: start: 20091106

REACTIONS (2)
  - PROCEDURAL COMPLICATION [None]
  - CARDIAC VALVE DISEASE [None]
